FAERS Safety Report 17325189 (Version 1)
Quarter: 2020Q1

REPORT INFORMATION
  Report Type: Spontaneous
  Country: US (occurrence: US)
  Receive Date: 20200127
  Receipt Date: 20200127
  Transmission Date: 20200409
  Serious: Yes (Other)
  Sender: FDA-Public Use
  Company Number: US-PFIZER INC-2020014352

PATIENT
  Age: 68 Year
  Sex: Female
  Weight: 108.8 kg

DRUGS (4)
  1. XELJANZ XR [Suspect]
     Active Substance: TOFACITINIB CITRATE
     Indication: PSORIATIC ARTHROPATHY
     Dosage: UNK
     Dates: start: 2017
  2. XELJANZ XR [Suspect]
     Active Substance: TOFACITINIB CITRATE
     Indication: COLITIS MICROSCOPIC
     Dosage: 22 MG, 1X/DAY
     Route: 048
     Dates: start: 201902, end: 2019
  3. XELJANZ XR [Suspect]
     Active Substance: TOFACITINIB CITRATE
     Dosage: 11 MG, 1X/DAY (1 TABLET ONCE DAILY BY MOUTH )
     Route: 048
     Dates: start: 2019
  4. HIZENTRA [Concomitant]
     Active Substance: HUMAN IMMUNOGLOBULIN G
     Dosage: 50 MG, UNK (EVERY MONDAY)
     Route: 058
     Dates: start: 2016

REACTIONS (6)
  - Immunodeficiency common variable [Unknown]
  - Neuropathy peripheral [Recovered/Resolved]
  - Immune system disorder [Unknown]
  - Enthesopathy [Not Recovered/Not Resolved]
  - Peroneal nerve palsy [Recovered/Resolved]
  - Nerve injury [Recovered/Resolved]
